FAERS Safety Report 5557196-8 (Version None)
Quarter: 2007Q4

REPORT INFORMATION
  Report Type: 
  Country: None (occurrence: None)
  Receive Date: 20071211
  Receipt Date: 20071211
  Transmission Date: 20080405
  Serious: Yes (Hospitalization)
  Sender: FDA-Public Use
  Company Number: None

PATIENT
  Sex: Male
  Weight: 56.18 kg

DRUGS (3)
  1. CISPLATIN [Suspect]
     Dosage: 100.2 MG
  2. ERBITUX [Suspect]
     Dosage: 1252.5 MG
  3. CAMPTOSAR [Suspect]
     Dosage: 217.1 MG

REACTIONS (1)
  - LYMPHOPENIA [None]
